FAERS Safety Report 23783713 (Version 1)
Quarter: 2024Q2

REPORT INFORMATION
  Report Type: Report from Study
  Country: US (occurrence: US)
  Receive Date: 20240425
  Receipt Date: 20240425
  Transmission Date: 20240716
  Serious: Yes (Other)
  Sender: FDA-Public Use
  Company Number: US-ABBVIE-5702911

PATIENT
  Sex: Female

DRUGS (1)
  1. HUMIRA [Suspect]
     Active Substance: ADALIMUMAB
     Indication: Crohn^s disease
     Dosage: FORM STRENGTH: 40 MILLIGRAM?CITRATE FREE
     Route: 058

REACTIONS (5)
  - Hernia [Unknown]
  - Pharyngeal operation [Unknown]
  - Intestinal resection [Unknown]
  - Parathyroid gland operation [Unknown]
  - Ileostomy closure [Unknown]

NARRATIVE: CASE EVENT DATE: 20240101
